FAERS Safety Report 6874581-2 (Version None)
Quarter: 2010Q3

REPORT INFORMATION
  Report Type: 
  Country: None (occurrence: None)
  Receive Date: 20100722
  Receipt Date: 20100716
  Transmission Date: 20110219
  Serious: Yes (Hospitalization, Disabling)
  Sender: FDA-Public Use
  Company Number: TPG2010A00081

PATIENT
  Sex: Female

DRUGS (3)
  1. ACTOS [Suspect]
     Indication: TYPE 2 DIABETES MELLITUS
     Dosage: PER ORAL
     Route: 048
  2. FUROSEMIDE [Concomitant]
  3. NOVOLOG [Concomitant]

REACTIONS (10)
  - CARDIAC FAILURE [None]
  - DRY SKIN [None]
  - GAIT DISTURBANCE [None]
  - LIPOEDEMA [None]
  - LYMPHOEDEMA [None]
  - OEDEMA [None]
  - SKIN FISSURES [None]
  - SKIN HAEMORRHAGE [None]
  - SKIN ULCER [None]
  - WEIGHT INCREASED [None]
